FAERS Safety Report 17949821 (Version 2)
Quarter: 2020Q3

REPORT INFORMATION
  Report Type: Spontaneous
  Country: US (occurrence: US)
  Receive Date: 20200626
  Receipt Date: 20200831
  Transmission Date: 20201103
  Serious: Yes (Other)
  Sender: FDA-Public Use
  Company Number: US-GILEAD-2020-0475185

PATIENT
  Sex: Male

DRUGS (3)
  1. DESCOVY [Concomitant]
     Active Substance: EMTRICITABINE\TENOFOVIR ALAFENAMIDE FUMARATE
  2. VIREAD [Suspect]
     Active Substance: TENOFOVIR DISOPROXIL FUMARATE
     Indication: HIV INFECTION
     Dosage: UNK
     Route: 048
     Dates: start: 200806, end: 201712
  3. TRUVADA [Suspect]
     Active Substance: EMTRICITABINE\TENOFOVIR DISOPROXIL FUMARATE
     Indication: HIV INFECTION
     Dosage: UNK
     Route: 048
     Dates: start: 200806, end: 201712

REACTIONS (9)
  - Bone density decreased [Unknown]
  - Bone loss [Unknown]
  - Skeletal injury [Unknown]
  - Fracture [Unknown]
  - Renal impairment [Not Recovered/Not Resolved]
  - Tooth loss [Unknown]
  - Renal injury [Unknown]
  - Osteonecrosis [Unknown]
  - Osteogenesis imperfecta [Not Recovered/Not Resolved]
